FAERS Safety Report 7589355-7 (Version None)
Quarter: 2011Q3

REPORT INFORMATION
  Report Type: 
  Country: None (occurrence: None)
  Receive Date: 20110705
  Receipt Date: 20110627
  Transmission Date: 20111222
  Serious: No
  Sender: FDA-Public Use
  Company Number: US-PFIZER INC-2011073309

PATIENT
  Sex: Female

DRUGS (2)
  1. ESTRING [Suspect]
     Indication: VULVOVAGINAL PRURITUS
  2. ESTRING [Suspect]
     Indication: VULVOVAGINAL DRYNESS
     Dosage: UNK
     Dates: start: 20100101

REACTIONS (1)
  - NO ADVERSE EVENT [None]
